FAERS Safety Report 9797842 (Version 1)
Quarter: 2013Q4

REPORT INFORMATION
  Report Type: Spontaneous
  Country: FR (occurrence: None)
  Receive Date: 20131231
  Receipt Date: 20131231
  Transmission Date: 20140711
  Serious: Yes (Death, Life-Threatening)
  Sender: FDA-Public Use
  Company Number: 2013SA130961

PATIENT
  Age: 69 Year
  Sex: Male

DRUGS (6)
  1. TAXOTERE [Suspect]
     Route: 042
     Dates: start: 20130807, end: 20131014
  2. DECAPEPTYL - SLOW [Concomitant]
  3. RELEASE [Concomitant]
  4. ANANDRON [Concomitant]
  5. ZYTIGA [Concomitant]
  6. XGEVA [Concomitant]

REACTIONS (2)
  - Interstitial lung disease [None]
  - Acute respiratory distress syndrome [None]
